FAERS Safety Report 16314755 (Version 2)
Quarter: 2019Q3

REPORT INFORMATION
  Report Type: Spontaneous
  Country: US (occurrence: US)
  Receive Date: 20190515
  Receipt Date: 20190712
  Transmission Date: 20191004
  Serious: No
  Sender: FDA-Public Use
  Company Number: US-GLAXOSMITHKLINE-US2019085279

PATIENT
  Age: 79 Year
  Sex: Female

DRUGS (1)
  1. VENTOLIN HFA [Suspect]
     Active Substance: ALBUTEROL SULFATE
     Indication: ASTHMA
     Dosage: 1 PUFF(S), PRESCRIBED 1-2 PUFFS BY MOUTH FOUR TIMES A DAY
     Route: 055
     Dates: start: 201905

REACTIONS (5)
  - Dyspnoea [Unknown]
  - Product dose omission [Unknown]
  - Product complaint [Unknown]
  - Asthma [Unknown]
  - Cough [Unknown]

NARRATIVE: CASE EVENT DATE: 20190513
